FAERS Safety Report 21273874 (Version 1)
Quarter: 2022Q3

REPORT INFORMATION
  Report Type: Spontaneous
  Country: US (occurrence: US)
  Receive Date: 20220831
  Receipt Date: 20220831
  Transmission Date: 20221026
  Serious: Yes (Life-Threatening, Hospitalization, Other)
  Sender: FDA-Public Use
  Company Number: US-SUN PHARMACEUTICAL INDUSTRIES LTD-2022R1-352891

PATIENT
  Age: 31 Year
  Sex: Female

DRUGS (3)
  1. METHADONE [Suspect]
     Active Substance: METHADONE HYDROCHLORIDE
     Indication: Drug use disorder
     Dosage: 40 MILLIGRAM, DAILY
     Route: 048
  2. METHADONE [Suspect]
     Active Substance: METHADONE HYDROCHLORIDE
     Dosage: 150 MILLIGRAM, DAILY
     Route: 048
  3. FENTANYL [Suspect]
     Active Substance: FENTANYL
     Indication: Product used for unknown indication
     Dosage: UNK, SEVEN TIMES PER DAY
     Route: 045

REACTIONS (6)
  - Cardio-respiratory arrest [Unknown]
  - Ventricular tachycardia [Unknown]
  - Constipation [Unknown]
  - Drug use disorder [Unknown]
  - Colitis ischaemic [Unknown]
  - Electrocardiogram QT prolonged [Unknown]
